FAERS Safety Report 23901105 (Version 1)
Quarter: 2024Q2

REPORT INFORMATION
  Report Type: Spontaneous
  Country: US (occurrence: None)
  Receive Date: 20240526
  Receipt Date: 20240526
  Transmission Date: 20240715
  Serious: No
  Sender: FDA-Public Use
  Company Number: US-ROCHE-3388630

PATIENT
  Sex: Male
  Weight: 123.03 kg

DRUGS (7)
  1. OCREVUS [Suspect]
     Active Substance: OCRELIZUMAB
     Indication: Multiple sclerosis
     Dosage: DATE OF TREATMENT 12/JUN/2023 AND 13/DEC/2022
     Route: 042
     Dates: start: 20200323
  2. SOLU-MEDROL [Concomitant]
     Active Substance: METHYLPREDNISOLONE SODIUM SUCCINATE
     Dosage: PUSH OVER 3 TO 5 MINUTES - 30 MINUTES PRIOR TO EACH INFUSION
     Route: 042
  3. DIPHENHYDRAMINE [Concomitant]
     Active Substance: DIPHENHYDRAMINE
     Dosage: PUSH OVER 1 TO 2 MINUTES - 30 MINUTES PRIOR TO EACH INFUSION.
     Route: 042
  4. ACETAMINOPHEN [Concomitant]
     Active Substance: ACETAMINOPHEN
     Dosage: 30 MINUTES PRIOR TO EACH INFUSION.
     Route: 048
  5. CLONAZEPAM [Concomitant]
     Active Substance: CLONAZEPAM
  6. SEROQUEL XR [Concomitant]
     Active Substance: QUETIAPINE FUMARATE
  7. TRAZODONE HCL [Concomitant]
     Active Substance: TRAZODONE HYDROCHLORIDE
     Dosage: 150 MG AT BEDTIME

REACTIONS (2)
  - Syncope [Unknown]
  - Contusion [Unknown]
